FAERS Safety Report 9926066 (Version 2)
Quarter: 2014Q1

REPORT INFORMATION
  Report Type: Spontaneous
  Country: US (occurrence: US)
  Receive Date: 20140226
  Receipt Date: 20140325
  Transmission Date: 20141002
  Serious: No
  Sender: FDA-Public Use
  Company Number: US-B.I. PHARMACEUTICALS,INC./RIDGEFIELD-2014-BI-07356BP

PATIENT
  Age: 51 Year
  Sex: Female

DRUGS (7)
  1. SPIRIVA [Suspect]
     Indication: CHRONIC OBSTRUCTIVE PULMONARY DISEASE
     Dosage: 18 MCG
     Route: 055
     Dates: start: 201301
  2. ZANTAC (RANITIDINE HYDROCHLORIDE) [Suspect]
     Indication: ABDOMINAL DISCOMFORT
     Dosage: 150 MG
     Route: 048
     Dates: start: 201301
  3. NORCO [Concomitant]
     Indication: INTERVERTEBRAL DISC DEGENERATION
     Route: 048
  4. MELOXICAM [Concomitant]
     Indication: ARTHRITIS
     Route: 048
  5. PRAVISTATIN [Concomitant]
     Indication: BLOOD CHOLESTEROL INCREASED
     Route: 048
  6. XANAX [Concomitant]
     Indication: ANXIETY
     Route: 048
  7. ZANTAC [Concomitant]
     Indication: ABDOMINAL DISCOMFORT
     Dosage: 15 MG
     Route: 048
     Dates: start: 201302

REACTIONS (9)
  - Dyspnoea [Not Recovered/Not Resolved]
  - Asthma [Recovered/Resolved]
  - Choking [Recovered/Resolved]
  - Dysuria [Not Recovered/Not Resolved]
  - Intentional drug misuse [Not Recovered/Not Resolved]
  - Off label use [Not Recovered/Not Resolved]
  - Product quality issue [Not Recovered/Not Resolved]
  - Product quality issue [Not Recovered/Not Resolved]
  - Product quality issue [Not Recovered/Not Resolved]
